FAERS Safety Report 7553725-3 (Version None)
Quarter: 2011Q2

REPORT INFORMATION
  Report Type: 
  Country: None (occurrence: None)
  Receive Date: 20110617
  Receipt Date: 20110601
  Transmission Date: 20111010
  Serious: Yes (Hospitalization)
  Sender: FDA-Public Use
  Company Number: RU-CELGENEUS-CA046-10-0249

PATIENT
  Sex: Male
  Weight: 75 kg

DRUGS (15)
  1. HEPTRAL [Concomitant]
     Indication: HEPATORENAL SYNDROME
     Route: 048
     Dates: start: 20100519, end: 20100526
  2. MAGNESIUM HYDROXIDE [Concomitant]
     Route: 048
     Dates: start: 20090401, end: 20100525
  3. AMIODARONE HCL [Concomitant]
     Route: 051
     Dates: start: 20100525, end: 20100528
  4. PANCREATIN [Concomitant]
     Route: 048
     Dates: start: 20100519
  5. METOPROLOL TARTRATE [Concomitant]
     Route: 048
     Dates: start: 20100528
  6. INSULIN [Concomitant]
     Route: 058
     Dates: start: 20100526
  7. GLUCOSE [Concomitant]
     Dates: start: 20100526
  8. ASPIRIN [Concomitant]
     Route: 048
     Dates: start: 20090401, end: 20100525
  9. AMINOSTERIL N-HEPA [Concomitant]
     Indication: HEPATORENAL SYNDROME
     Route: 051
     Dates: start: 20100526, end: 20100526
  10. ATENOLOL [Concomitant]
     Indication: PROPHYLAXIS
     Route: 048
     Dates: start: 20100520, end: 20100524
  11. FUROSEMIDE [Concomitant]
     Route: 051
     Dates: start: 20100527, end: 20100528
  12. ABRAXANE [Suspect]
     Route: 065
     Dates: start: 20100513, end: 20100520
  13. GEMCITABINE [Suspect]
     Route: 065
     Dates: start: 20100513, end: 20100520
  14. LOPERAMIDE [Concomitant]
     Route: 048
     Dates: start: 20100524, end: 20100525
  15. ORNITHINE [Concomitant]
     Indication: HEPATORENAL SYNDROME
     Route: 051
     Dates: start: 20100526, end: 20100526

REACTIONS (3)
  - SEPTIC SHOCK [None]
  - ACUTE HEPATIC FAILURE [None]
  - MUCOSAL INFLAMMATION [None]
